FAERS Safety Report 24911261 (Version 1)
Quarter: 2025Q1

REPORT INFORMATION
  Report Type: Spontaneous
  Country: US (occurrence: US)
  Receive Date: 20250131
  Receipt Date: 20250131
  Transmission Date: 20250409
  Serious: No
  Sender: JOHNSON AND JOHNSON
  Company Number: US-JNJFOC-20250111112

PATIENT
  Age: 66 Year
  Sex: Male

DRUGS (1)
  1. ERLEADA [Suspect]
     Active Substance: APALUTAMIDE
     Indication: Product used for unknown indication
     Dosage: 60 MG TAKE 4 TABLETS BY MOUTH ONCE DAILY FOR 120 MG TOTAL.
     Route: 048
     Dates: start: 20240703

REACTIONS (2)
  - Muscle spasms [Not Recovered/Not Resolved]
  - Initial insomnia [Not Recovered/Not Resolved]
